FAERS Safety Report 9493260 (Version 1)
Quarter: 2013Q3

REPORT INFORMATION
  Report Type: Report from Study
  Country: NL (occurrence: NL)
  Receive Date: 20130902
  Receipt Date: 20130902
  Transmission Date: 20140515
  Serious: Yes (Death)
  Sender: FDA-Public Use
  Company Number: PHHY2013NL094785

PATIENT
  Sex: Male

DRUGS (2)
  1. ZOMETA [Suspect]
     Indication: RENAL CELL CARCINOMA
     Dosage: 4 MG, PER 100 ML; 1X PER 4 WEEKS
  2. ZOMETA [Suspect]
     Dosage: 4 MG, PER 100 ML; 1X PER 4 WEEKS
     Dates: start: 20130809

REACTIONS (1)
  - Pneumonia [Fatal]
